FAERS Safety Report 8924039 (Version 1)
Quarter: 2012Q4

REPORT INFORMATION
  Report Type: 
  Country: US (occurrence: US)
  Receive Date: 20121126
  Receipt Date: 20121126
  Transmission Date: 20130627
  Serious: No
  Sender: FDA-Public Use
  Company Number: US-ROXANE LABORATORIES, INC.-2012-RO-02374RO

PATIENT
  Age: 46 Year
  Sex: Male

DRUGS (8)
  1. METHOTREXATE [Suspect]
     Indication: RHEUMATOID ARTHRITIS
     Route: 048
  2. CIMZIA [Concomitant]
     Indication: RHEUMATOID ARTHRITIS
     Dates: start: 201206
  3. NEXIUM [Concomitant]
  4. VITAMIN D3 [Concomitant]
  5. DIOVAN [Concomitant]
  6. FOLIC ACID [Concomitant]
  7. ALLEGRA [Concomitant]
  8. NASONEX [Concomitant]

REACTIONS (2)
  - Drug screen positive [Unknown]
  - Hepatic enzyme increased [Unknown]
